FAERS Safety Report 18043042 (Version 1)
Quarter: 2020Q3

REPORT INFORMATION
  Report Type: Spontaneous
  Country: US (occurrence: US)
  Receive Date: 20200717
  Receipt Date: 20200717
  Transmission Date: 20201103
  Serious: No
  Sender: FDA-Public Use
  Company Number: None

PATIENT
  Age: 50 Year
  Sex: Female
  Weight: 103.5 kg

DRUGS (6)
  1. FIBER CAPSULES [Concomitant]
  2. CPAP [Concomitant]
     Active Substance: DEVICE
  3. CALCIUM + VITAMIN D [Concomitant]
     Active Substance: CALCIUM\VITAMIN D
  4. AMBIEN [Concomitant]
     Active Substance: ZOLPIDEM TARTRATE
  5. PROPRANOLOL [Concomitant]
     Active Substance: PROPRANOLOL HYDROCHLORIDE
  6. LISINOPRIL. [Suspect]
     Active Substance: LISINOPRIL
     Indication: HYPERTENSION
     Dosage: ?          QUANTITY:30 TABLET(S);?
     Route: 048
     Dates: start: 20200317, end: 20200715

REACTIONS (9)
  - Cardiac flutter [None]
  - Periorbital swelling [None]
  - Pain in jaw [None]
  - Alopecia [None]
  - Glossodynia [None]
  - Pain in extremity [None]
  - Muscle spasms [None]
  - Palpitations [None]
  - Ear congestion [None]

NARRATIVE: CASE EVENT DATE: 20200317
